FAERS Safety Report 8826588 (Version 1)
Quarter: 2012Q4

REPORT INFORMATION
  Report Type: 
  Country: GB (occurrence: GB)
  Receive Date: 20121005
  Receipt Date: 20121005
  Transmission Date: 20130627
  Serious: Yes (Death, Other)
  Sender: FDA-Public Use
  Company Number: PHHY2012GB085530

PATIENT
  Age: 40 Year
  Sex: Male
  Weight: 104 kg

DRUGS (19)
  1. HYDROXOCOBALAMIN [Concomitant]
     Indication: VITAMIN D DEFICIENCY
     Dosage: 1 DF, UNK
     Dates: end: 20110823
  2. NUTRITION SUPPLEMENTS [Concomitant]
     Indication: NUTRITIONAL SUPPORT
     Dosage: 1 DF, QD
     Route: 048
     Dates: start: 20110105
  3. MST CONTINUS [Concomitant]
     Indication: PAIN
     Dosage: 20 mg, QD
     Route: 048
     Dates: end: 20110818
  4. LANSOPRAZOLE [Concomitant]
     Indication: DYSPEPSIA
     Dosage: 30 mg, QD
     Dates: start: 20070219
  5. VENTOLIN [Concomitant]
     Dosage: 100 ug/puff
     Route: 055
  6. ASCORBIC ACID [Concomitant]
     Indication: PRODUCT USED FOR UNKNOWN INDICATION
     Dosage: 2 DF (1000 + 10mg (ZINC) two tablets daily)
     Route: 048
     Dates: start: 20111006
  7. DIAZEPAM [Concomitant]
     Indication: CROHN^S DISEASE
     Route: 048
     Dates: start: 20111010
  8. METHADONE [Suspect]
     Indication: ABDOMINAL PAIN
     Dosage: 45 mg, BID
     Route: 048
  9. METHADONE [Interacting]
     Indication: CROHN^S DISEASE
     Dosage: 35 mg, BID
     Route: 048
     Dates: start: 20111025
  10. CLARITHROMYCIN [Interacting]
     Indication: PHARYNGITIS
     Dosage: 500 mg, BID
     Route: 048
     Dates: start: 20111025
  11. HUMIRA [Suspect]
     Indication: CROHN^S DISEASE
     Dosage: 160 mg, BIW
     Route: 058
     Dates: start: 20111005
  12. HUMIRA [Suspect]
     Dosage: UNK mg, BIW
  13. HUMIRA [Suspect]
     Dosage: 80 mg, BIW
     Route: 058
     Dates: start: 20111027
  14. ORAMORPH [Concomitant]
     Indication: ABDOMINAL PAIN
     Route: 048
     Dates: start: 201102, end: 20111025
  15. ORAMORPH [Concomitant]
     Indication: CROHN^S DISEASE
  16. ADCAL-D3 [Concomitant]
     Indication: BONE DISORDER
     Dosage: 1 DF, BID
     Route: 048
     Dates: start: 20110808
  17. ADCAL-D3 [Concomitant]
     Indication: PROPHYLAXIS
  18. PARACETAMOL [Concomitant]
     Indication: PAIN
     Dosage: 1 g, QID (Long standing QDS - As required (PRN))
  19. VITAMINS NOS [Concomitant]
     Indication: NUTRITIONAL SUPPORT
     Dates: start: 20110623

REACTIONS (27)
  - Toxicity to various agents [Fatal]
  - Diffuse alveolar damage [Fatal]
  - Crohn^s disease [Fatal]
  - Pyrexia [Fatal]
  - Malaise [Fatal]
  - Hyperhidrosis [Fatal]
  - Rectal haemorrhage [Fatal]
  - White blood cell count increased [Fatal]
  - Inflammatory marker increased [Fatal]
  - Pneumonitis [Unknown]
  - Drug interaction [Unknown]
  - Infection [Unknown]
  - Dysarthria [Unknown]
  - Influenza [Unknown]
  - Diplopia [Unknown]
  - Dysuria [Unknown]
  - Oropharyngeal pain [Unknown]
  - Aggression [Unknown]
  - Vomiting [Unknown]
  - Headache [Unknown]
  - Hiccups [Unknown]
  - Confusional state [Unknown]
  - Vision blurred [Unknown]
  - Tremor [Unknown]
  - Dizziness [Unknown]
  - Chest pain [Unknown]
  - Erythema [Unknown]
